FAERS Safety Report 22595822 (Version 1)
Quarter: 2023Q2

REPORT INFORMATION
  Report Type: Spontaneous
  Country: JP (occurrence: None)
  Receive Date: 20230613
  Receipt Date: 20230613
  Transmission Date: 20230721
  Serious: Yes (Life-Threatening, Hospitalization, Other)
  Sender: FDA-Public Use
  Company Number: 2023A116757

PATIENT
  Age: 74 Year
  Sex: Male

DRUGS (16)
  1. IMFINZI [Suspect]
     Active Substance: DURVALUMAB
     Indication: Bile duct cancer
     Dosage: 1500.0MG UNKNOWN
     Route: 041
     Dates: start: 20230419, end: 20230419
  2. CISPLATIN [Suspect]
     Active Substance: CISPLATIN
     Indication: Bile duct cancer
     Dosage: DOSE UNKNOWN
     Route: 041
     Dates: start: 20210512, end: 20230322
  3. CISPLATIN [Suspect]
     Active Substance: CISPLATIN
     Indication: Bile duct cancer
     Dosage: DOSE UNKNOWN
     Route: 041
     Dates: start: 20230419, end: 20230419
  4. GEMCITABINE [Suspect]
     Active Substance: GEMCITABINE
     Indication: Bile duct cancer
     Dosage: DOSE UNKNOWN
     Route: 041
     Dates: start: 20210512, end: 20230322
  5. GEMCITABINE [Suspect]
     Active Substance: GEMCITABINE
     Indication: Bile duct cancer
     Dosage: DOSE UNKNOWN
     Route: 041
     Dates: start: 20230419, end: 20230419
  6. TS-1 [Suspect]
     Active Substance: GIMERACIL\OTERACIL\TEGAFUR
     Indication: Bile duct cancer
     Dates: start: 20210512, end: 20210512
  7. VALPROATE SODIUM [Concomitant]
     Active Substance: VALPROATE SODIUM
     Dosage: DOSE UNKNOWN
     Route: 048
  8. TOFRANIL [Concomitant]
     Active Substance: IMIPRAMINE HYDROCHLORIDE
     Dosage: DOSE UNKNOWN
     Route: 048
  9. AMITRIPTYLINE [Concomitant]
     Active Substance: AMITRIPTYLINE
     Dosage: DOSE UNKNOWN
     Route: 048
  10. PRAVASTATIN SODIUM [Concomitant]
     Active Substance: PRAVASTATIN SODIUM
     Dosage: DOSE UNKNOWN
     Route: 048
  11. IPRAGLIFLOZIN L-PROLINE [Concomitant]
     Active Substance: IPRAGLIFLOZIN L-PROLINE
     Dosage: DOSE UNKNOWN
     Route: 048
  12. VONOPRAZAN FUMARATE [Concomitant]
     Active Substance: VONOPRAZAN FUMARATE
     Dosage: DOSE UNKNOWN
     Route: 048
  13. PANCRELIPASE [Concomitant]
     Active Substance: PANCRELIPASE
     Dosage: DOSE UNKNOWN
     Route: 048
  14. LOXOPROFEN [Concomitant]
     Active Substance: LOXOPROFEN
     Dosage: DOSE UNKNOWN
     Route: 048
  15. MAGNESIUM OXIDE [Concomitant]
     Active Substance: MAGNESIUM OXIDE
     Dosage: DOSE UNKNOWN, ADMINISTERED BEFORE 2020
     Route: 048
  16. IOMERON [Concomitant]
     Active Substance: IOMEPROL
     Route: 042
     Dates: start: 20200713, end: 20230609

REACTIONS (3)
  - Tubulointerstitial nephritis [Not Recovered/Not Resolved]
  - Platelet count decreased [Recovering/Resolving]
  - Hepatic enzyme increased [Recovering/Resolving]

NARRATIVE: CASE EVENT DATE: 20230420
